FAERS Safety Report 10251601 (Version 2)
Quarter: 2014Q3

REPORT INFORMATION
  Report Type: Spontaneous
  Country: GR (occurrence: GR)
  Receive Date: 20140623
  Receipt Date: 20140703
  Transmission Date: 20150326
  Serious: Yes (Hospitalization)
  Sender: FDA-Public Use
  Company Number: GR-AMGEN-GRCSP2014045528

PATIENT
  Sex: Female

DRUGS (2)
  1. MIMPARA [Suspect]
     Active Substance: CINACALCET HYDROCHLORIDE
     Indication: HYPERPARATHYROIDISM PRIMARY
     Dosage: 30 MG,(ONE TABLET) QD
     Route: 048
     Dates: start: 20140606
  2. LEXOTANIL [Concomitant]
     Active Substance: BROMAZEPAM
     Indication: SICKLE CELL ANAEMIA

REACTIONS (2)
  - Epilepsy [Recovered/Resolved]
  - Insomnia [Unknown]

NARRATIVE: CASE EVENT DATE: 20140613
